FAERS Safety Report 24920180 (Version 1)
Quarter: 2025Q1

REPORT INFORMATION
  Report Type: Report from Study
  Country: US (occurrence: US)
  Receive Date: 20250204
  Receipt Date: 20250204
  Transmission Date: 20250409
  Serious: No
  Sender: EXELIXIS
  Company Number: US-EXELIXIS-CABO-24073081

PATIENT
  Sex: Male

DRUGS (4)
  1. CABOMETYX [Suspect]
     Active Substance: CABOZANTINIB S-MALATE
     Indication: Thyroid cancer
     Dates: start: 20231208
  2. CABOMETYX [Suspect]
     Active Substance: CABOZANTINIB S-MALATE
     Indication: Metastases to lung
     Dosage: 40 MG, QD
     Dates: start: 20240125
  3. CABOMETYX [Suspect]
     Active Substance: CABOZANTINIB S-MALATE
     Indication: Metastasis
  4. METOPROLOL [Concomitant]
     Active Substance: METOPROLOL

REACTIONS (13)
  - Blood pressure diastolic increased [Recovered/Resolved]
  - Periorbital swelling [Unknown]
  - Sensitive skin [Not Recovered/Not Resolved]
  - Oral mucosal eruption [Recovering/Resolving]
  - Peripheral coldness [Not Recovered/Not Resolved]
  - Visual impairment [Unknown]
  - Taste disorder [Not Recovered/Not Resolved]
  - Diarrhoea [Unknown]
  - Pruritus [Not Recovered/Not Resolved]
  - Fatigue [Not Recovered/Not Resolved]
  - Muscle spasms [Not Recovered/Not Resolved]
  - Proctalgia [Recovered/Resolved]
  - Thyroglobulin increased [Not Recovered/Not Resolved]
